FAERS Safety Report 5123322-8 (Version None)
Quarter: 2006Q4

REPORT INFORMATION
  Report Type: 
  Country: None (occurrence: None)
  Receive Date: 20061009
  Receipt Date: 20060714
  Transmission Date: 20070319
  Serious: Yes (Other)
  Sender: FDA-Public Use
  Company Number: BR-BRISTOL-MYERS SQUIBB COMPANY-13443700

PATIENT
  Age: 38 Year
  Sex: Female

DRUGS (4)
  1. DASATINIB [Suspect]
     Indication: CHRONIC MYELOID LEUKAEMIA
     Route: 048
     Dates: start: 20060512
  2. FLUOXETINE [Concomitant]
     Dates: start: 20060512
  3. DIAZEPAM [Concomitant]
     Dates: start: 20060512
  4. MESIGYNA [Concomitant]
     Indication: CONTRACEPTION
     Route: 030
     Dates: start: 20060505

REACTIONS (2)
  - ABORTION SPONTANEOUS [None]
  - PREGNANCY [None]
